FAERS Safety Report 18485880 (Version 1)
Quarter: 2020Q4

REPORT INFORMATION
  Report Type: Spontaneous
  Country: PT (occurrence: PT)
  Receive Date: 20201110
  Receipt Date: 20201110
  Transmission Date: 20210114
  Serious: Yes (Other)
  Sender: FDA-Public Use
  Company Number: PT-009507513-2011PRT002082

PATIENT
  Age: 51 Year
  Sex: Female

DRUGS (1)
  1. ISENTRESS [Suspect]
     Active Substance: RALTEGRAVIR POTASSIUM
     Indication: HIV INFECTION
     Dosage: 1200 MILLIGRAM, QD
     Route: 048

REACTIONS (10)
  - Ataxia [Unknown]
  - Pleocytosis [Unknown]
  - CSF protein increased [Unknown]
  - Therapeutic product effect incomplete [Unknown]
  - Headache [Unknown]
  - Cerebral atrophy [Unknown]
  - Cognitive disorder [Recovered/Resolved]
  - Dysarthria [Unknown]
  - Viral load abnormal [Unknown]
  - Cerebellar atrophy [Unknown]
